FAERS Safety Report 10468225 (Version 1)
Quarter: 2014Q3

REPORT INFORMATION
  Report Type: Report from Study
  Country: DE (occurrence: DE)
  Receive Date: 20140922
  Receipt Date: 20140922
  Transmission Date: 20150326
  Serious: Yes (Other)
  Sender: FDA-Public Use
  Company Number: DE-SA-2014SA125865

PATIENT
  Age: 28 Year
  Sex: Male

DRUGS (11)
  1. CLOFARABINE [Suspect]
     Active Substance: CLOFARABINE
     Indication: MYELODYSPLASTIC SYNDROME
     Route: 041
  2. THERAPEUTIC RADIOPHARMACEUTICALS [Suspect]
     Active Substance: RADIATION THERAPY
     Indication: BONE MARROW CONDITIONING REGIMEN
     Route: 065
  3. CICLOSPORIN [Concomitant]
     Active Substance: CYCLOSPORINE
     Indication: PROPHYLAXIS AGAINST GRAFT VERSUS HOST DISEASE
  4. MYCOPHENOLATE MOFETIL. [Concomitant]
     Active Substance: MYCOPHENOLATE MOFETIL
     Indication: PROPHYLAXIS AGAINST GRAFT VERSUS HOST DISEASE
  5. METRONIDAZOLE. [Concomitant]
     Active Substance: METRONIDAZOLE
     Indication: ANTIBIOTIC PROPHYLAXIS
  6. LEVOFLOXACIN [Concomitant]
     Active Substance: LEVOFLOXACIN
     Indication: ANTIBIOTIC PROPHYLAXIS
  7. CYCLOPHOSPHAMIDE. [Suspect]
     Active Substance: CYCLOPHOSPHAMIDE
     Indication: BONE MARROW CONDITIONING REGIMEN
     Route: 065
  8. ANTI-THYMOCYTE GLOBULIN (RABBIT) [Suspect]
     Active Substance: LAPINE T-LYMPHOCYTE IMMUNE GLOBULIN
     Indication: BONE MARROW CONDITIONING REGIMEN
     Route: 065
  9. FLUCONAZOLE. [Concomitant]
     Active Substance: FLUCONAZOLE
     Indication: ANTIFUNGAL PROPHYLAXIS
  10. CYTARABINE. [Suspect]
     Active Substance: CYTARABINE
     Indication: MYELODYSPLASTIC SYNDROME
     Route: 041
  11. ACYCLOVIR. [Concomitant]
     Active Substance: ACYCLOVIR
     Indication: ANTIVIRAL PROPHYLAXIS

REACTIONS (8)
  - Haematotoxicity [Unknown]
  - Aspartate aminotransferase increased [Recovered/Resolved]
  - Staphylococcal infection [Unknown]
  - Pyrexia [Unknown]
  - Blood bilirubin increased [Recovered/Resolved]
  - Palmar-plantar erythrodysaesthesia syndrome [Recovered/Resolved]
  - Cerebral haemorrhage [Unknown]
  - Alanine aminotransferase increased [Recovered/Resolved]
